FAERS Safety Report 26137295 (Version 1)
Quarter: 2025Q4

REPORT INFORMATION
  Report Type: Spontaneous
  Country: RU (occurrence: RU)
  Receive Date: 20251209
  Receipt Date: 20251209
  Transmission Date: 20260117
  Serious: Yes (Other)
  Sender: ELI LILLY AND COMPANY
  Company Number: RU-ELI_LILLY_AND_COMPANY-RU202512007651

PATIENT
  Age: 64 Year
  Sex: Female

DRUGS (3)
  1. PEMETREXED [Suspect]
     Active Substance: PEMETREXED
     Indication: Adenocarcinoma
     Dosage: UNK UNK, UNKNOWN
     Route: 065
     Dates: start: 20220218, end: 202301
  2. BEVACIZUMAB [Suspect]
     Active Substance: BEVACIZUMAB
     Indication: Adenocarcinoma
     Dosage: UNK UNK, UNKNOWN
     Route: 065
     Dates: start: 202202
  3. CARBOPLATIN [Concomitant]
     Active Substance: CARBOPLATIN
     Indication: Product used for unknown indication
     Dosage: UNK
     Dates: start: 20220218

REACTIONS (4)
  - Nephropathy toxic [Unknown]
  - Blood creatinine increased [Unknown]
  - Blood potassium increased [Unknown]
  - Therapy partial responder [Unknown]
